FAERS Safety Report 4555997-6 (Version None)
Quarter: 2005Q1

REPORT INFORMATION
  Report Type: 
  Country: None (occurrence: None)
  Receive Date: 20050110
  Receipt Date: 20040616
  Transmission Date: 20050727
  Serious: Yes (Hospitalization)
  Sender: FDA-Public Use
  Company Number: US005348

PATIENT
  Age: 60 Year
  Sex: Female

DRUGS (4)
  1. ANAKINRA [Suspect]
     Indication: RHEUMATOID ARTHRITIS
     Dosage: 100 MG, DAILY, SC
     Route: 058
     Dates: start: 20001020, end: 20010508
  2. METHOTREXATE [Concomitant]
  3. FOLIC ACID [Concomitant]
  4. IBUPROFEN [Concomitant]

REACTIONS (1)
  - PNEUMONIA [None]
